FAERS Safety Report 6825978-8 (Version None)
Quarter: 2010Q3

REPORT INFORMATION
  Report Type: 
  Country: None (occurrence: None)
  Receive Date: 20100707
  Receipt Date: 20100707
  Transmission Date: 20110219
  Serious: Yes (Hospitalization)
  Sender: FDA-Public Use
  Company Number: None

PATIENT
  Age: 44 Year
  Sex: Male
  Weight: 107.0489 kg

DRUGS (1)
  1. FLECAINIDE ACETATE [Suspect]
     Indication: ATRIAL FIBRILLATION
     Dosage: 50MG (1/2 TAB) TWICE DAILY BY MOUTH
     Route: 048
     Dates: start: 20100614, end: 20100616

REACTIONS (1)
  - RESPIRATORY DISTRESS [None]
